FAERS Safety Report 12921789 (Version 1)
Quarter: 2016Q4

REPORT INFORMATION
  Report Type: Spontaneous
  Country: US (occurrence: US)
  Receive Date: 20161108
  Receipt Date: 20161108
  Transmission Date: 20170207
  Serious: Yes (Hospitalization, Other)
  Sender: FDA-Public Use
  Company Number: US-BRISTOL-MYERS SQUIBB COMPANY-BMS-2016-087882

PATIENT
  Sex: Male

DRUGS (1)
  1. YERVOY [Suspect]
     Active Substance: IPILIMUMAB
     Indication: MALIGNANT MELANOMA
     Dosage: UNK
     Route: 042

REACTIONS (10)
  - Streptococcal infection [Unknown]
  - Asthenopia [Unknown]
  - Fatigue [Recovering/Resolving]
  - Tremor [Unknown]
  - Sepsis [Unknown]
  - Arthralgia [Unknown]
  - Pain [Recovering/Resolving]
  - Chills [Unknown]
  - Therapeutic response unexpected [Unknown]
  - Pyrexia [Unknown]
